FAERS Safety Report 8981415 (Version 2)
Quarter: 2013Q1

REPORT INFORMATION
  Report Type: Spontaneous
  Country: US (occurrence: US)
  Receive Date: 20121221
  Receipt Date: 20130117
  Transmission Date: 20140127
  Serious: No
  Sender: FDA-Public Use
  Company Number: US-PFIZER INC-2012320617

PATIENT
  Age: 55 Year
  Sex: Female
  Weight: 56.69 kg

DRUGS (4)
  1. ESTRING [Suspect]
     Indication: VULVOVAGINAL DRYNESS
     Dosage: EVERY 3 MOTHS
     Route: 067
     Dates: start: 20121025, end: 20121213
  2. ESTRING [Suspect]
     Indication: DYSPAREUNIA
  3. DHEA [Concomitant]
     Indication: LIBIDO DECREASED
     Dosage: 1 MG, 1X/DAY
     Route: 058
     Dates: start: 20121025
  4. DHEA [Concomitant]
     Indication: SEXUAL DYSFUNCTION

REACTIONS (1)
  - Vulvovaginal burning sensation [Recovered/Resolved]
